FAERS Safety Report 10381848 (Version 1)
Quarter: 2014Q1

REPORT INFORMATION
  Report Type: Spontaneous
  Country: US (occurrence: None)
  Receive Date: 20140306
  Receipt Date: 20140306
  Transmission Date: 20141002
  Serious: Yes (Hospitalization)
  Sender: FDA-Public Use
  Company Number: 163-21880-13090324

PATIENT
  Age: 73 Year
  Sex: Male
  Weight: 78.5 kg

DRUGS (8)
  1. REVLIMID [Suspect]
     Indication: PLASMA CELL MYELOMA
     Route: 048
     Dates: start: 201210
  2. LORTAB (VICODIN) [Concomitant]
  3. DECADRON (DEXAMETHASONE) [Concomitant]
  4. GLUCOSAMINE/CHONDROITIN (GLUCOSAMINE W/CHONDROITIN SULFATE) [Concomitant]
  5. SAW PALMETTO (SERENOA REPENS) [Concomitant]
  6. OMEGA 3 (FISH OIL) [Concomitant]
  7. CRESTOR (ROSUVASTATIN) [Concomitant]
  8. TOPROL XL (METOPROLOL SUCCINATE) (100 MILLIGRAM) (METOPROLOL SUCCINATE) [Concomitant]

REACTIONS (1)
  - Pneumonia [None]
